FAERS Safety Report 12570511 (Version 1)
Quarter: 2016Q3

REPORT INFORMATION
  Report Type: Spontaneous
  Country: GB (occurrence: GB)
  Receive Date: 20160719
  Receipt Date: 20160719
  Transmission Date: 20161109
  Serious: Yes (Hospitalization)
  Sender: FDA-Public Use
  Company Number: GB-CONCORDIA PHARMACEUTICALS INC.-GSH201607-003611

PATIENT
  Age: 20 Year
  Sex: Male
  Weight: 76.8 kg

DRUGS (2)
  1. PREDNISOLONE. [Suspect]
     Active Substance: PREDNISOLONE
     Route: 065
     Dates: start: 201606
  2. INFLECTRA [Suspect]
     Active Substance: INFLIXIMAB-DYYB
     Indication: COLITIS ULCERATIVE
     Dosage: FREQ-8 WEEKLY
     Route: 042
     Dates: start: 20151015

REACTIONS (5)
  - Fatigue [Unknown]
  - Liver function test abnormal [Unknown]
  - Influenza [Unknown]
  - Hepatitis viral [Unknown]
  - Cough [Unknown]

NARRATIVE: CASE EVENT DATE: 201606
